FAERS Safety Report 8294778-7 (Version None)
Quarter: 2012Q2

REPORT INFORMATION
  Report Type: 
  Country: None (occurrence: None)
  Receive Date: 20120418
  Receipt Date: 20120411
  Transmission Date: 20120825
  Serious: Yes (Hospitalization)
  Sender: FDA-Public Use
  Company Number: FR-PFIZER INC-2012089825

PATIENT
  Age: 60 Year
  Sex: Male

DRUGS (5)
  1. OXAZEPAM [Concomitant]
     Dosage: 5 MG, UNK
     Dates: end: 20120227
  2. ABILIFY [Suspect]
     Dosage: 20 MG, 1X/DAY
     Route: 048
     Dates: start: 20111115, end: 20120220
  3. IMOVANE [Concomitant]
     Dosage: 3.75 MG DAILY
     Dates: start: 20120224, end: 20120227
  4. KEPPRA [Suspect]
     Dosage: 500 MG, 1X/DAY
     Route: 048
     Dates: start: 20111108, end: 20120227
  5. EFFEXOR XR [Suspect]
     Dosage: 75 MG, 1X/DAY
     Route: 048
     Dates: start: 20120221, end: 20120227

REACTIONS (3)
  - SERUM FERRITIN INCREASED [None]
  - HEPATOCELLULAR INJURY [None]
  - HEPATITIS [None]
